FAERS Safety Report 9966281 (Version 1)
Quarter: 2014Q1

REPORT INFORMATION
  Report Type: Report from Study
  Country: US (occurrence: US)
  Receive Date: 20140305
  Receipt Date: 20140305
  Transmission Date: 20141002
  Serious: No
  Sender: FDA-Public Use
  Company Number: US-ABBVIE-13P-163-1123171-00

PATIENT
  Age: 53 Year
  Sex: Female
  Weight: 97.16 kg

DRUGS (12)
  1. HUMIRA [Suspect]
     Indication: CROHN^S DISEASE
     Dosage: ONE DOSE
     Dates: start: 20130628, end: 20130628
  2. HUMIRA [Suspect]
     Indication: COLITIS ULCERATIVE
     Dosage: ONE DOSE
     Dates: start: 20130712, end: 20130712
  3. ASACOL [Concomitant]
     Indication: CROHN^S DISEASE
  4. ASACOL [Concomitant]
     Indication: COLITIS ULCERATIVE
  5. PURINETHOL [Concomitant]
     Indication: CROHN^S DISEASE
  6. PURINETHOL [Concomitant]
     Indication: COLITIS ULCERATIVE
  7. LEVSIN [Concomitant]
     Indication: CROHN^S DISEASE
  8. LEVSIN [Concomitant]
     Indication: COLITIS ULCERATIVE
  9. PAXIL [Concomitant]
     Indication: DEPRESSION
  10. PAXIL [Concomitant]
     Indication: ANXIETY
  11. FOLIC ACID [Concomitant]
     Indication: PRODUCT USED FOR UNKNOWN INDICATION
  12. UNNAMED MEDICATION [Concomitant]
     Indication: HYPERSENSITIVITY

REACTIONS (3)
  - Joint stiffness [Not Recovered/Not Resolved]
  - Muscle spasms [Not Recovered/Not Resolved]
  - Sciatic nerve neuropathy [Not Recovered/Not Resolved]
